FAERS Safety Report 12446383 (Version 1)
Quarter: 2016Q2

REPORT INFORMATION
  Report Type: Report from Study
  Country: US (occurrence: US)
  Receive Date: 20160608
  Receipt Date: 20160608
  Transmission Date: 20160815
  Serious: No
  Sender: FDA-Public Use
  Company Number: US-AMGEN-USASL2016071328

PATIENT
  Age: 53 Year
  Sex: Female

DRUGS (1)
  1. ENBREL [Suspect]
     Active Substance: ETANERCEPT
     Indication: PRODUCT USED FOR UNKNOWN INDICATION
     Dosage: UNK
     Route: 065
     Dates: start: 2012

REACTIONS (9)
  - Gait disturbance [Unknown]
  - Injection site swelling [Unknown]
  - Rash generalised [Unknown]
  - Skin exfoliation [Unknown]
  - Urticaria [Unknown]
  - Rash erythematous [Unknown]
  - Injection site mass [Unknown]
  - Arthropathy [Recovered/Resolved]
  - Spinal column injury [Unknown]
